FAERS Safety Report 6823456-3 (Version None)
Quarter: 2010Q3

REPORT INFORMATION
  Report Type: 
  Country: None (occurrence: None)
  Receive Date: 20100708
  Receipt Date: 20100624
  Transmission Date: 20110219
  Serious: Yes (Other)
  Sender: FDA-Public Use
  Company Number: PHHY2010NL38927

PATIENT
  Sex: Male

DRUGS (1)
  1. ZOMETA [Suspect]
     Dosage: 04 MG, UNK
     Route: 042
     Dates: start: 20100518

REACTIONS (4)
  - BONE PAIN [None]
  - MALIGNANT NEOPLASM PROGRESSION [None]
  - METASTASES TO BONE [None]
  - MIDDLE INSOMNIA [None]
